FAERS Safety Report 6375683-X (Version None)
Quarter: 2009Q3

REPORT INFORMATION
  Report Type: 
  Country: None (occurrence: None)
  Receive Date: 20090924
  Receipt Date: 20090915
  Transmission Date: 20100115
  Serious: Yes (Other)
  Sender: FDA-Public Use
  Company Number: BR-AVENTIS-200920664GDDC

PATIENT
  Sex: Female
  Weight: 45.9 kg

DRUGS (2)
  1. LANTUS [Suspect]
     Route: 058
     Dates: start: 20070101
  2. AUTOPEN 24 [Suspect]
     Dates: start: 20090201

REACTIONS (3)
  - HYPOGLYCAEMIA [None]
  - PRODUCT QUALITY ISSUE [None]
  - SYNCOPE [None]
